APPROVED DRUG PRODUCT: LYNPARZA
Active Ingredient: OLAPARIB
Strength: 150MG
Dosage Form/Route: TABLET;ORAL
Application: N208558 | Product #002
Applicant: ASTRAZENECA PHARMACEUTICALS LP
Approved: Aug 17, 2017 | RLD: Yes | RS: Yes | Type: RX

PATENTS:
Patent 8859562 | Expires: Aug 4, 2031
Patent 8859562 | Expires: Aug 4, 2031
Patent 8143241 | Expires: Aug 12, 2027
Patent 8143241 | Expires: Aug 12, 2027
Patent 8143241 | Expires: Aug 12, 2027
Patent 8859562 | Expires: Aug 4, 2031
Patent 8859562 | Expires: Aug 4, 2031
Patent 8143241 | Expires: Aug 12, 2027
Patent 8859562 | Expires: Aug 4, 2031
Patent 8071579 | Expires: Aug 12, 2027
Patent 8143241 | Expires: Aug 12, 2027
Patent 8859562 | Expires: Aug 4, 2031
Patent 8859562 | Expires: Aug 4, 2031
Patent 8071579 | Expires: Aug 12, 2027
Patent 8071579 | Expires: Aug 12, 2027
Patent 8071579 | Expires: Aug 12, 2027
Patent 8143241 | Expires: Aug 12, 2027
Patent 8143241 | Expires: Aug 12, 2027
Patent 8143241 | Expires: Aug 12, 2027
Patent 8143241 | Expires: Aug 12, 2027
Patent 8143241 | Expires: Aug 12, 2027
Patent 8143241 | Expires: Aug 12, 2027
Patent 8859562 | Expires: Aug 4, 2031
Patent 8859562 | Expires: Aug 4, 2031
Patent 8859562 | Expires: Aug 4, 2031
Patent 8859562 | Expires: Aug 4, 2031
Patent 8859562 | Expires: Aug 4, 2031
Patent 8859562 | Expires: Aug 4, 2031
Patent 11970530 | Expires: Oct 25, 2041
Patent 11970530 | Expires: Oct 25, 2041
Patent 11970530 | Expires: Oct 25, 2041
Patent 8071579 | Expires: Aug 12, 2027
Patent 8143241 | Expires: Aug 12, 2027
Patent 8859562 | Expires: Aug 4, 2031
Patent 8071579 | Expires: Aug 12, 2027
Patent 8071579 | Expires: Aug 12, 2027
Patent 8071579 | Expires: Aug 12, 2027
Patent 8071579 | Expires: Aug 12, 2027
Patent 8071579 | Expires: Aug 12, 2027
Patent 8071579 | Expires: Aug 12, 2027
Patent 8071579 | Expires: Aug 12, 2027
Patent 8071579 | Expires: Aug 12, 2027
Patent 8143241 | Expires: Aug 12, 2027
Patent 8143241 | Expires: Aug 12, 2027
Patent 8859562 | Expires: Aug 4, 2031
Patent 8071579 | Expires: Aug 12, 2027
Patent 8143241 | Expires: Aug 12, 2027
Patent 8859562 | Expires: Aug 4, 2031
Patent 8071579 | Expires: Aug 12, 2027
Patent 8859562 | Expires: Aug 4, 2031
Patent 11975001 | Expires: Oct 7, 2029
Patent 12178816 | Expires: Oct 7, 2029
Patent 11633396 | Expires: Oct 7, 2029
Patent 7449464 | Expires: Sep 8, 2027
Patent 12048695 | Expires: Oct 7, 2029
Patent 12144810 | Expires: Oct 7, 2029
Patent 8475842 | Expires: Dec 31, 2029

EXCLUSIVITY:
Code: I-914 | Date: May 31, 2026
Code: ODE-283 | Date: Dec 27, 2026
Code: ODE-306 | Date: May 8, 2027